FAERS Safety Report 7217195-7 (Version None)
Quarter: 2011Q1

REPORT INFORMATION
  Report Type: 
  Country: None (occurrence: None)
  Receive Date: 20110110
  Receipt Date: 20110103
  Transmission Date: 20110831
  Serious: Yes (Death)
  Sender: FDA-Public Use
  Company Number: US-SANOFI-AVENTIS-2010SA075097

PATIENT
  Age: 58 Year
  Sex: Male
  Weight: 117.27 kg

DRUGS (6)
  1. ZOCOR [Concomitant]
  2. WARFARIN [Concomitant]
  3. JEVTANA KIT [Suspect]
     Route: 041
     Dates: start: 20101102, end: 20101102
  4. SPIRONOLACTONE [Concomitant]
  5. K-DUR [Concomitant]
  6. OXYCODONE [Concomitant]

REACTIONS (1)
  - ACUTE MYOCARDIAL INFARCTION [None]
